FAERS Safety Report 4333105-4 (Version None)
Quarter: 2004Q2

REPORT INFORMATION
  Report Type: 
  Country: None (occurrence: None)
  Receive Date: 20040402
  Receipt Date: 20040318
  Transmission Date: 20050107
  Serious: Yes (Congenital Anomaly)
  Sender: FDA-Public Use
  Company Number: 2004-NL-00036NL

PATIENT
  Sex: Male

DRUGS (6)
  1. VIRAMUNE [Suspect]
     Dosage: INTRAUTERINE
     Route: 015
     Dates: start: 20021001
  2. LAMIVUDINE (LAMIVUDINE) [Suspect]
     Dosage: INTRAUTERINE
     Route: 015
     Dates: start: 20021001
  3. NELFINAVIR (NELFINAVIR) [Suspect]
     Dosage: INTRAUTERINE EXPOSURE
     Route: 015
     Dates: start: 20021001
  4. ZIDOVUDINE [Suspect]
     Dosage: INTRAUTERINE EXPOSURE
     Route: 015
     Dates: start: 20021001
  5. LOPINAVIR/RITONAVIR [Suspect]
     Dosage: INTRAUTERINE EXPOSURE
     Route: 015
     Dates: start: 20030809
  6. TENOFOVIR (TENOFOVIR) [Suspect]
     Dosage: INTRAUTERINE EXPOSURE
     Route: 015
     Dates: start: 20030809

REACTIONS (1)
  - CONGENITAL CYSTIC LUNG [None]
